FAERS Safety Report 8586726-7 (Version None)
Quarter: 2012Q3

REPORT INFORMATION
  Report Type: 
  Country: None (occurrence: None)
  Receive Date: 20120810
  Receipt Date: 20120803
  Transmission Date: 20120928
  Serious: Yes (Hospitalization)
  Sender: FDA-Public Use
  Company Number: US-UCBSA-063024

PATIENT
  Age: 71 Year
  Sex: Male
  Weight: 70 kg

DRUGS (13)
  1. ASPIRIN [Concomitant]
     Indication: PROPHYLAXIS
     Dosage: 81 MG
     Route: 048
  2. CIPROFLOXACIN HCL [Concomitant]
     Indication: LOCALISED INTRAABDOMINAL FLUID COLLECTION
     Route: 048
     Dates: start: 20120711
  3. CIMZIA [Suspect]
     Indication: CROHN'S DISEASE
     Route: 058
     Dates: start: 20100304
  4. HYDROCODONE BITARTRATE + ACETAMINOPHEN [Concomitant]
     Indication: BACK PAIN
     Dosage: 325 MG 1 TABLET PO TID PRN
     Route: 048
     Dates: start: 20100101
  5. MULTI-VITAMIN [Concomitant]
     Indication: VITAMIN SUPPLEMENTATION
     Dosage: 1 DAILY
     Route: 048
     Dates: start: 20050101
  6. FERROUS SULFATE TAB [Concomitant]
     Indication: ANAEMIA
     Route: 048
     Dates: start: 20090101
  7. LOPERAMIDE [Concomitant]
     Indication: DIARRHOEA
     Dosage: QID PRN
     Route: 048
     Dates: start: 20050101
  8. VITAMIN D [Concomitant]
  9. CALCIUM CITRATE [Concomitant]
     Indication: OSTEOPOROSIS
     Route: 048
     Dates: start: 20050101
  10. INSULIN LISPRO [Concomitant]
     Indication: DIABETES MELLITUS
     Dosage: INSULIN PUMP
     Route: 058
     Dates: start: 20050101
  11. MULTI-VITAMIN [Concomitant]
     Indication: DIABETES MELLITUS
     Dosage: 1 DAILY
     Route: 048
     Dates: start: 20050101
  12. METRONIDAZOLE [Concomitant]
     Indication: LOCALISED INTRAABDOMINAL FLUID COLLECTION
     Route: 048
     Dates: start: 20120711
  13. TRICOR [Concomitant]
     Dosage: 48 MG
     Route: 048
     Dates: start: 20070101

REACTIONS (1)
  - ABDOMINAL ABSCESS [None]
